FAERS Safety Report 19003496 (Version 1)
Quarter: 2021Q1

REPORT INFORMATION
  Report Type: Spontaneous
  Country: US (occurrence: US)
  Receive Date: 20210312
  Receipt Date: 20210312
  Transmission Date: 20210420
  Serious: No
  Sender: FDA-Public Use
  Company Number: US-BAYER-2021-103873

PATIENT
  Age: 78 Year
  Sex: Female

DRUGS (3)
  1. DULCOLAX (BISACODYL) [Concomitant]
     Active Substance: BISACODYL
     Indication: COLONOSCOPY
  2. TAGITOL V [Concomitant]
     Active Substance: BARIUM SULFATE
  3. MIRALAX [Suspect]
     Active Substance: POLYETHYLENE GLYCOL 3350
     Indication: COLONOSCOPY
     Route: 048
     Dates: start: 202010, end: 202010

REACTIONS (5)
  - Illness [Unknown]
  - Off label use [Unknown]
  - Product use in unapproved indication [Unknown]
  - Frequent bowel movements [Unknown]
  - Vomiting [Unknown]

NARRATIVE: CASE EVENT DATE: 202010
